FAERS Safety Report 18754298 (Version 1)
Quarter: 2021Q1

REPORT INFORMATION
  Report Type: Spontaneous
  Country: US (occurrence: US)
  Receive Date: 20210119
  Receipt Date: 20210119
  Transmission Date: 20210419
  Serious: Yes (Other)
  Sender: FDA-Public Use
  Company Number: US-GW PHARMA-202101USGW00098

PATIENT

DRUGS (1)
  1. EPIDIOLEX [Suspect]
     Active Substance: CANNABIDIOL
     Indication: EPILEPSY
     Dosage: 10.73 MG/KG/DAY, 300 MILLIGRAM, BID
     Route: 048
     Dates: start: 202009

REACTIONS (2)
  - Seizure [Unknown]
  - Product dose omission issue [Unknown]
